FAERS Safety Report 8983221 (Version 5)
Quarter: 2013Q3

REPORT INFORMATION
  Report Type: Report from Study
  Country: JP (occurrence: JP)
  Receive Date: 20121224
  Receipt Date: 20130913
  Transmission Date: 20140515
  Serious: Yes (Death, Hospitalization)
  Sender: FDA-Public Use
  Company Number: JP-AMGEN-JPNCT2012082520

PATIENT
  Age: 87 Year
  Sex: Female
  Weight: 47 kg

DRUGS (24)
  1. DARBEPOETIN ALFA [Suspect]
     Indication: NEPHROGENIC ANAEMIA
     Dosage: 60 MUG, QD
     Route: 058
     Dates: start: 20111006, end: 20111006
  2. DARBEPOETIN ALFA [Suspect]
     Dosage: 60 MUG, Q3WK
     Route: 058
     Dates: start: 20111110, end: 20111201
  3. DARBEPOETIN ALFA [Suspect]
     Dosage: 60 MUG, QD
     Route: 058
     Dates: start: 20120117, end: 20120117
  4. DARBEPOETIN ALFA [Suspect]
     Dosage: 60 MUG, QD
     Route: 058
     Dates: start: 20120216, end: 20120216
  5. DARBEPOETIN ALFA [Suspect]
     Dosage: 60 MUG, QD
     Route: 058
     Dates: start: 20120329, end: 20120329
  6. DARBEPOETIN ALFA [Suspect]
     Dosage: 60 MUG, QD
     Route: 058
     Dates: start: 20120607, end: 20120607
  7. DARBEPOETIN ALFA [Suspect]
     Dosage: 80 MUG, QD
     Route: 058
     Dates: start: 20120820, end: 20120820
  8. DARBEPOETIN ALFA [Suspect]
     Dosage: 80 MUG, QD
     Route: 058
     Dates: start: 20120906, end: 20120906
  9. DARBEPOETIN ALFA [Suspect]
     Dosage: 80 MUG, QD
     Route: 058
     Dates: start: 20121019, end: 20121019
  10. DARBEPOETIN ALFA [Suspect]
     Dosage: 80 MUG, QD
     Route: 058
     Dates: start: 20121129, end: 20121129
  11. DARBEPOETIN ALFA [Suspect]
     Dosage: 100 MUG, QD
     Route: 058
     Dates: start: 20121213, end: 20121213
  12. DARBEPOETIN ALFA [Suspect]
     Dosage: 100 MUG, QD
     Route: 058
     Dates: start: 20130107, end: 20130107
  13. DARBEPOETIN ALFA [Suspect]
     Dosage: 100 MUG, QD
     Route: 058
     Dates: start: 20130207
  14. DIOVAN [Concomitant]
     Dosage: UNK
     Route: 048
  15. AMLODIN [Concomitant]
     Dosage: UNK
     Route: 048
  16. CARDENALIN [Concomitant]
     Dosage: UNK
     Route: 048
  17. PERSANTIN [Concomitant]
     Dosage: UNK
     Route: 048
  18. FASTIC [Concomitant]
     Dosage: UNK
     Route: 048
  19. ACARBOSE [Concomitant]
     Dosage: UNK
     Route: 048
  20. LIPITOR [Concomitant]
     Dosage: UNK
     Route: 048
  21. KALIMATE [Concomitant]
     Dosage: UNK
     Route: 048
  22. GASTER D [Concomitant]
     Dosage: UNK
     Route: 048
  23. BAYASPIRIN [Concomitant]
     Dosage: UNK
     Route: 048
  24. ARGAMATE [Concomitant]
     Dosage: UNK
     Route: 048

REACTIONS (4)
  - Death [Fatal]
  - Pneumonia aspiration [Recovered/Resolved]
  - Gastric ulcer [Recovered/Resolved]
  - Iron deficiency anaemia [Recovering/Resolving]
